FAERS Safety Report 20543512 (Version 1)
Quarter: 2022Q1

REPORT INFORMATION
  Report Type: Spontaneous
  Country: RU (occurrence: RU)
  Receive Date: 20220302
  Receipt Date: 20220302
  Transmission Date: 20220423
  Serious: Yes (Other)
  Sender: FDA-Public Use
  Company Number: RU-ABBVIE-22K-251-4296536-00

PATIENT
  Age: 32 Month
  Sex: Male

DRUGS (1)
  1. VALPROATE SODIUM [Suspect]
     Active Substance: VALPROATE SODIUM
     Indication: Product used for unknown indication
     Route: 065

REACTIONS (6)
  - Seizure [Unknown]
  - Blood glucose decreased [Unknown]
  - Insulin C-peptide decreased [Unknown]
  - Rotavirus infection [Unknown]
  - Muscle spasms [Unknown]
  - Depression [Unknown]
